FAERS Safety Report 21187557 (Version 2)
Quarter: 2022Q3

REPORT INFORMATION
  Report Type: Report from Study
  Country: US (occurrence: US)
  Receive Date: 20220808
  Receipt Date: 20220824
  Transmission Date: 20221027
  Serious: Yes (Other)
  Sender: FDA-Public Use
  Company Number: US-ABBVIE-22K-163-4494353-00

PATIENT
  Sex: Female

DRUGS (4)
  1. IMBRUVICA [Suspect]
     Active Substance: IBRUTINIB
     Indication: Chronic lymphocytic leukaemia
     Route: 048
     Dates: start: 2019
  2. IMBRUVICA [Suspect]
     Active Substance: IBRUTINIB
     Route: 048
     Dates: start: 20220805
  3. PFIZER-BIONTECH COVID-19 VACCINE [Concomitant]
     Active Substance: TOZINAMERAN
     Indication: COVID-19 immunisation
     Dosage: FIRST DOSE
     Route: 030
     Dates: start: 202008, end: 202008
  4. PFIZER-BIONTECH COVID-19 VACCINE [Concomitant]
     Active Substance: TOZINAMERAN
     Dosage: SECOND DOSE
     Route: 030
     Dates: start: 202104, end: 202104

REACTIONS (20)
  - Central vision loss [Recovering/Resolving]
  - Dry age-related macular degeneration [Unknown]
  - Splenomegaly [Not Recovered/Not Resolved]
  - Hypophagia [Not Recovered/Not Resolved]
  - Psoriatic arthropathy [Unknown]
  - Lymphadenopathy [Not Recovered/Not Resolved]
  - Platelet count abnormal [Unknown]
  - Sinus disorder [Not Recovered/Not Resolved]
  - Ear pain [Unknown]
  - Middle ear effusion [Unknown]
  - Gastrooesophageal reflux disease [Not Recovered/Not Resolved]
  - Contusion [Not Recovered/Not Resolved]
  - Hypersensitivity [Not Recovered/Not Resolved]
  - COVID-19 [Recovering/Resolving]
  - Malaise [Unknown]
  - Blood pressure increased [Unknown]
  - Dry eye [Unknown]
  - Lacrimation increased [Unknown]
  - Neck pain [Unknown]
  - Localised infection [Unknown]

NARRATIVE: CASE EVENT DATE: 20190101
